FAERS Safety Report 9421105 (Version 2)
Quarter: 2013Q3

REPORT INFORMATION
  Report Type: Spontaneous
  Country: IT (occurrence: IT)
  Receive Date: 20130724
  Receipt Date: 20130812
  Transmission Date: 20140515
  Serious: Yes (Life-Threatening)
  Sender: FDA-Public Use
  Company Number: 2013AP006589

PATIENT
  Age: 64 Year
  Sex: Female

DRUGS (8)
  1. MIRTAZAPINE [Suspect]
     Indication: PRODUCT USED FOR UNKNOWN INDICATION
     Route: 048
  2. VENLAFAXINE HYDROCHLORIDE [Suspect]
     Indication: PRODUCT USED FOR UNKNOWN INDICATION
     Route: 048
  3. QUETIAPINE FUMARATE [Suspect]
     Indication: PRODUCT USED FOR UNKNOWN INDICATION
     Route: 048
  4. ENALAPRIL [Suspect]
     Indication: PRODUCT USED FOR UNKNOWN INDICATION
     Route: 048
  5. DIAZEPAM [Suspect]
     Indication: PRODUCT USED FOR UNKNOWN INDICATION
  6. LEVOMEPROMAZINE MALEATE [Suspect]
     Indication: PRODUCT USED FOR UNKNOWN INDICATION
  7. TOPIRAMATE [Suspect]
     Indication: PRODUCT USED FOR UNKNOWN INDICATION
  8. BUPROPION HYDROCHLORIDE [Suspect]
     Indication: PRODUCT USED FOR UNKNOWN INDICATION

REACTIONS (9)
  - Coma [None]
  - Hepatic enzyme increased [None]
  - Drug abuse [None]
  - Neurological decompensation [None]
  - Aspartate aminotransferase increased [None]
  - Alanine aminotransferase increased [None]
  - Alveolar-arterial oxygen gradient increased [None]
  - Oxygen saturation decreased [None]
  - PO2 decreased [None]
